FAERS Safety Report 17638183 (Version 1)
Quarter: 2020Q2

REPORT INFORMATION
  Report Type: Spontaneous
  Country: US (occurrence: US)
  Receive Date: 20200407
  Receipt Date: 20200407
  Transmission Date: 20200713
  Serious: No
  Sender: FDA-Public Use
  Company Number: None

PATIENT
  Sex: Male

DRUGS (2)
  1. VERZENIO [Suspect]
     Active Substance: ABEMACICLIB
     Indication: BREAST CANCER MALE
     Route: 048
     Dates: start: 20190226
  2. VERZENIO [Suspect]
     Active Substance: ABEMACICLIB
     Indication: METASTASES TO BONE
     Route: 048
     Dates: start: 20190226

REACTIONS (1)
  - Fatigue [None]
